FAERS Safety Report 9216455 (Version 1)
Quarter: 2013Q1

REPORT INFORMATION
  Report Type: Spontaneous
  Country: US (occurrence: None)
  Receive Date: 20130212
  Receipt Date: 20130212
  Transmission Date: 20140127
  Serious: Yes (Other)
  Sender: FDA-Public Use
  Company Number: AXC-2013-000039

PATIENT
  Age: 68 Year
  Sex: Male
  Weight: 104.5 kg

DRUGS (7)
  1. CANASA (MESALAMINE) SUPPOSITORY, 1000MG [Suspect]
     Indication: COLITIS ULCERATIVE
     Route: 054
  2. BISOPROLOL (BISOPROLOL) [Concomitant]
  3. NYSTATIN (NYSTATIN) [Concomitant]
  4. VITAMIN D /00318501/ (COLECALCIFEROL) [Concomitant]
  5. AMLODIPINE (AMLODIPINE) [Concomitant]
  6. ASACOL (MESALAZINE) [Concomitant]
  7. CITRUCEL (METHYLCELLULOSE) [Concomitant]

REACTIONS (2)
  - Amylase increased [None]
  - Lipase increased [None]
